FAERS Safety Report 5294816-X (Version None)
Quarter: 2007Q2

REPORT INFORMATION
  Report Type: 
  Country: None (occurrence: None)
  Receive Date: 20070412
  Receipt Date: 20070404
  Transmission Date: 20071010
  Serious: Yes (Hospitalization)
  Sender: FDA-Public Use
  Company Number: JP-AVENTIS-200710846JP

PATIENT
  Age: 77 Year
  Sex: Male

DRUGS (2)
  1. AMARYL [Suspect]
     Dates: start: 20040301, end: 20040701
  2. UNKNOWN DRUG [Suspect]
     Dates: start: 20040301, end: 20040701

REACTIONS (1)
  - NEPHRITIS INTERSTITIAL [None]
